FAERS Safety Report 6954714-X (Version None)
Quarter: 2010Q3

REPORT INFORMATION
  Report Type: 
  Country: None (occurrence: None)
  Receive Date: 20100829
  Receipt Date: 20080107
  Transmission Date: 20110219
  Serious: No
  Sender: FDA-Public Use
  Company Number: US-ALLERGAN-0800232US

PATIENT
  Age: 17 Year
  Sex: Female

DRUGS (1)
  1. FML [Suspect]
     Indication: ECZEMA
     Dosage: UNK, BID
     Route: 061
     Dates: end: 20080108

REACTIONS (1)
  - PIGMENTATION DISORDER [None]
